FAERS Safety Report 12076669 (Version 1)
Quarter: 2016Q1

REPORT INFORMATION
  Report Type: Spontaneous
  Country: US (occurrence: US)
  Receive Date: 20160215
  Receipt Date: 20160215
  Transmission Date: 20160526
  Serious: No
  Sender: FDA-Public Use
  Company Number: US-BAYER-2016-028345

PATIENT
  Age: 61 Year
  Sex: Female
  Weight: 78.46 kg

DRUGS (3)
  1. ZANTAC [Concomitant]
     Active Substance: RANITIDINE HYDROCHLORIDE
  2. ALEVE [Suspect]
     Active Substance: NAPROXEN SODIUM
     Indication: FIBROMYALGIA
     Dosage: 1 DF, TID
     Route: 048
     Dates: start: 1995
  3. ALEVE [Suspect]
     Active Substance: NAPROXEN SODIUM
     Indication: INJURY
     Dosage: 2 DF, BID
     Route: 048

REACTIONS (2)
  - Product use issue [None]
  - Therapeutic response unexpected [None]
